FAERS Safety Report 8041857-5 (Version None)
Quarter: 2011Q4

REPORT INFORMATION
  Report Type: 
  Country: None (occurrence: None)
  Receive Date: 20111202
  Receipt Date: 20110505
  Transmission Date: 20120403
  Serious: Yes (Other)
  Sender: FDA-Public Use
  Company Number: 2011SP020783

PATIENT
  Age: 21 Year
  Sex: Female

DRUGS (2)
  1. SYNTHROID [Concomitant]
  2. NUVARING [Suspect]
     Indication: CONTRACEPTION
     Dosage: 1 DF; ;VAG
     Route: 067
     Dates: start: 20020101, end: 20110412

REACTIONS (3)
  - DEEP VEIN THROMBOSIS [None]
  - THROMBOSIS [None]
  - WITHDRAWAL BLEED [None]
